FAERS Safety Report 22805562 (Version 4)
Quarter: 2023Q4

REPORT INFORMATION
  Report Type: Report from Study
  Country: US (occurrence: US)
  Receive Date: 20230809
  Receipt Date: 20231106
  Transmission Date: 20240110
  Serious: Yes (Hospitalization)
  Sender: FDA-Public Use
  Company Number: US-BAUSCH-BL-2023-012161

PATIENT
  Age: 63 Year
  Sex: Female
  Weight: 121.22 kg

DRUGS (2)
  1. XIFAXAN [Suspect]
     Active Substance: RIFAXIMIN
     Indication: Hepatic encephalopathy
     Route: 048
     Dates: start: 202209
  2. XIFAXAN [Suspect]
     Active Substance: RIFAXIMIN
     Route: 048
     Dates: start: 20231019

REACTIONS (5)
  - Hepatic encephalopathy [Unknown]
  - Condition aggravated [Unknown]
  - Lethargy [Unknown]
  - Decreased appetite [Unknown]
  - Product use issue [Unknown]

NARRATIVE: CASE EVENT DATE: 20230101
